FAERS Safety Report 15948229 (Version 1)
Quarter: 2019Q1

REPORT INFORMATION
  Report Type: Spontaneous
  Country: CH (occurrence: CH)
  Receive Date: 20190211
  Receipt Date: 20190211
  Transmission Date: 20190417
  Serious: Yes (Hospitalization)
  Sender: FDA-Public Use
  Company Number: CH-NOVOPROD-645406

PATIENT
  Age: 94 Year
  Sex: Female
  Weight: 48.5 kg

DRUGS (14)
  1. DISTRANEURIN                       /00027501/ [Concomitant]
     Active Substance: CLOMETHIAZOLE
     Dosage: 192 MG, QD
     Route: 048
  2. RYZODEG 70/30 [Suspect]
     Active Substance: INSULIN ASPART\INSULIN DEGLUDEC
     Indication: PRODUCT USED FOR UNKNOWN INDICATION
     Dosage: 12 IU, QD
     Route: 058
     Dates: end: 20190111
  3. MADOPAR [Concomitant]
     Active Substance: BENSERAZIDE HYDROCHLORIDE\LEVODOPA
     Dosage: 250 MG, UNK
     Route: 048
  4. TARGIN [Suspect]
     Active Substance: NALOXONE HYDROCHLORIDE\OXYCODONE HYDROCHLORIDE
     Indication: INTERVERTEBRAL DISC DISORDER
     Dosage: 2 MG, BID
     Route: 048
  5. TORASEMID SANDOZ ECO [Concomitant]
     Active Substance: TORSEMIDE
     Indication: HYPERTENSIVE CARDIOMYOPATHY
     Dosage: 10 MG, QD
     Route: 048
  6. VENLAFAXIN PFIZER [Concomitant]
     Active Substance: VENLAFAXINE HYDROCHLORIDE
     Dosage: 5 MG, QD
     Route: 048
  7. ALLOPURINOL MEPHA [Concomitant]
     Active Substance: ALLOPURINOL
     Dosage: 100 MG, QD
     Route: 048
  8. VESICARE [Concomitant]
     Active Substance: SOLIFENACIN SUCCINATE
     Dosage: 5 MG, QD
     Route: 048
  9. IMOVANE [Concomitant]
     Active Substance: ZOPICLONE
     Dosage: 7.5 MG, QD
     Route: 048
  10. PANTOZOL [Concomitant]
     Active Substance: PANTOPRAZOLE SODIUM
     Dosage: 40 MG, QD
     Route: 048
  11. CARVEDILOL SANDOZ [Suspect]
     Active Substance: CARVEDILOL
     Indication: HYPERTENSIVE CARDIOMYOPATHY
     Route: 048
     Dates: end: 20190111
  12. MOTILIUM [Concomitant]
     Active Substance: DOMPERIDONE
     Dosage: 10 MG, BID
     Route: 048
  13. XARELTO [Concomitant]
     Active Substance: RIVAROXABAN
     Dosage: 15 MG, QD
     Route: 048
  14. DAFALGAN [Concomitant]
     Active Substance: ACETAMINOPHEN
     Dosage: 1 MG, BID
     Route: 048

REACTIONS (3)
  - Hypoglycaemia [Recovered/Resolved]
  - Altered state of consciousness [Recovered/Resolved]
  - Bradycardia [Recovered/Resolved]

NARRATIVE: CASE EVENT DATE: 20190111
